FAERS Safety Report 23271776 (Version 7)
Quarter: 2025Q1

REPORT INFORMATION
  Report Type: Spontaneous
  Country: CA (occurrence: CA)
  Receive Date: 20231207
  Receipt Date: 20250116
  Transmission Date: 20250409
  Serious: Yes (Other)
  Sender: PFIZER
  Company Number: CA-PFIZER INC-202300427504

PATIENT
  Age: 4 Year
  Sex: Female
  Weight: 16 kg

DRUGS (4)
  1. METHOTREXATE SODIUM [Suspect]
     Active Substance: METHOTREXATE SODIUM
     Indication: Uveitis
     Dosage: 1 DF, WEEKLY
     Route: 058
     Dates: end: 20241202
  2. ABRILADA [Concomitant]
     Active Substance: ADALIMUMAB-AFZB
     Indication: Uveitis
     Route: 058
     Dates: start: 20240112
  3. ABRILADA [Concomitant]
     Active Substance: ADALIMUMAB-AFZB
     Route: 058
     Dates: start: 20240614
  4. PREDNISONE [Concomitant]
     Active Substance: PREDNISONE
     Route: 048
     Dates: start: 20231105, end: 20231114

REACTIONS (20)
  - Cataract [Unknown]
  - Blindness unilateral [Unknown]
  - Adenoiditis [Unknown]
  - Tonsillitis [Unknown]
  - Intraocular pressure increased [Unknown]
  - Post procedural complication [Unknown]
  - Eye swelling [Unknown]
  - Illness [Unknown]
  - Middle insomnia [Unknown]
  - Fatigue [Unknown]
  - Irritability [Unknown]
  - Pollakiuria [Unknown]
  - Screaming [Unknown]
  - Posturing [Unknown]
  - Back pain [Unknown]
  - Condition aggravated [Unknown]
  - Photosensitivity reaction [Unknown]
  - Photophobia [Unknown]
  - Off label use [Unknown]
  - Off label use [Unknown]

NARRATIVE: CASE EVENT DATE: 20230101
